FAERS Safety Report 10430257 (Version 1)
Quarter: 2014Q3

REPORT INFORMATION
  Report Type: Spontaneous
  Country: RU (occurrence: RU)
  Receive Date: 20140904
  Receipt Date: 20140904
  Transmission Date: 20150326
  Serious: Yes (Other)
  Sender: FDA-Public Use
  Company Number: RU-BAYER-2014-126982

PATIENT
  Age: 61 Year
  Sex: Male

DRUGS (2)
  1. LAMIVUDINE. [Concomitant]
     Active Substance: LAMIVUDINE
     Indication: CHRONIC HEPATITIS B
     Dosage: 100 MG, QD
  2. NEXAVAR [Suspect]
     Active Substance: SORAFENIB
     Indication: HEPATOCELLULAR CARCINOMA
     Dosage: 400 MG, BID
     Dates: start: 201103

REACTIONS (10)
  - Hepatic cirrhosis [None]
  - Pruritus [None]
  - Platelet count decreased [None]
  - Diarrhoea [None]
  - Hypertension [None]
  - Hepatocellular carcinoma [None]
  - Aspartate aminotransferase increased [None]
  - Blood albumin decreased [None]
  - Alanine aminotransferase increased [None]
  - Rash [None]

NARRATIVE: CASE EVENT DATE: 2011
